FAERS Safety Report 5187917-8 (Version None)
Quarter: 2006Q4

REPORT INFORMATION
  Report Type: 
  Country: None (occurrence: None)
  Receive Date: 20061221
  Receipt Date: 20061215
  Transmission Date: 20070319
  Serious: Yes (Other)
  Sender: FDA-Public Use
  Company Number: PHBS2006BR19461

PATIENT
  Age: 56 Year
  Sex: Female
  Weight: 67 kg

DRUGS (5)
  1. FORASEQ [Suspect]
     Indication: ASTHMA
     Dosage: UNK, BID
     Dates: start: 20060601
  2. BEROTEC [Concomitant]
     Indication: ASTHMA
  3. ATROVENT [Concomitant]
     Indication: ASTHMA
  4. CELESTONE [Concomitant]
     Indication: ASTHMA
     Dosage: 5 MG, BID
     Route: 048
  5. RIVOTRIL [Concomitant]
     Indication: DEPRESSION
     Dosage: 2 MG, BID
     Route: 048

REACTIONS (6)
  - ABDOMINAL PAIN [None]
  - CATARACT [None]
  - DECREASED APPETITE [None]
  - DYSENTERY [None]
  - VISUAL ACUITY REDUCED [None]
  - WEIGHT DECREASED [None]
